FAERS Safety Report 9200434 (Version 2)
Quarter: 2013Q2

REPORT INFORMATION
  Report Type: Spontaneous
  Country: JP (occurrence: JP)
  Receive Date: 20130329
  Receipt Date: 20130409
  Transmission Date: 20140414
  Serious: Yes (Death)
  Sender: FDA-Public Use
  Company Number: JP-OTSUKA-JP-2013-10759

PATIENT
  Age: 82 Year
  Sex: Male
  Weight: 71 kg

DRUGS (4)
  1. SAMSCA [Suspect]
     Indication: CARDIAC FAILURE
     Dosage: 7.5 MG MILLIGRAM(S), DAILY DOSE
     Route: 048
  2. FUROSEMIDE [Concomitant]
     Route: 042
  3. PIMOBENDAN [Concomitant]
     Dosage: 2.5 MG MILLIGRAM(S), DAILY DOSE
     Route: 048
  4. DOBUTAMINE [Concomitant]
     Route: 041

REACTIONS (4)
  - Renal impairment [Fatal]
  - Depressed level of consciousness [Fatal]
  - Multi-organ failure [Fatal]
  - Ventricular tachycardia [Fatal]
